FAERS Safety Report 7125926-X (Version None)
Quarter: 2010Q4

REPORT INFORMATION
  Report Type: 
  Country: None (occurrence: None)
  Receive Date: 20101129
  Receipt Date: 20101117
  Transmission Date: 20110411
  Serious: Yes (Other)
  Sender: FDA-Public Use
  Company Number: PHHY2010JP78620

PATIENT
  Sex: Female
  Weight: 42 kg

DRUGS (2)
  1. ZOMETA [Suspect]
     Indication: METASTASES TO BONE
     Dosage: 4MG (PER ADMINISTRATION)
     Route: 041
     Dates: start: 20091019, end: 20100412
  2. NOLVADEX [Concomitant]
     Indication: BREAST CANCER
     Dosage: 20 MG/H, UNK
     Route: 048
     Dates: start: 20090907

REACTIONS (8)
  - BONE DISORDER [None]
  - GINGIVAL SWELLING [None]
  - OSTEOMYELITIS [None]
  - OSTEONECROSIS OF JAW [None]
  - PRIMARY SEQUESTRUM [None]
  - PURULENCE [None]
  - SWELLING [None]
  - TENDERNESS [None]
